APPROVED DRUG PRODUCT: ROCURONIUM BROMIDE
Active Ingredient: ROCURONIUM BROMIDE
Strength: 50MG/5ML (10MG/ML)
Dosage Form/Route: SOLUTION;INTRAVENOUS
Application: N219108 | Product #001
Applicant: B BRAUN MEDICAL INC
Approved: Oct 24, 2025 | RLD: Yes | RS: Yes | Type: RX

PATENTS:
Patent 11998605 | Expires: Jul 22, 2039